FAERS Safety Report 7904500-9 (Version None)
Quarter: 2011Q4

REPORT INFORMATION
  Report Type: 
  Country: None (occurrence: None)
  Receive Date: 20111109
  Receipt Date: 20111031
  Transmission Date: 20120403
  Serious: Yes (Other)
  Sender: FDA-Public Use
  Company Number: CR-ASTRAZENECA-2011SE65686

PATIENT
  Age: 71 Year
  Sex: Male

DRUGS (2)
  1. ATACAND [Suspect]
     Indication: SYSTOLIC HYPERTENSION
     Route: 048
     Dates: start: 20090101
  2. PLENDIL [Suspect]
     Indication: SYSTOLIC HYPERTENSION
     Route: 048
     Dates: start: 20110401, end: 20111021

REACTIONS (3)
  - SYNCOPE [None]
  - LOSS OF CONSCIOUSNESS [None]
  - ORTHOSTATIC HYPOTENSION [None]
